FAERS Safety Report 8501520-0 (Version None)
Quarter: 2012Q3

REPORT INFORMATION
  Report Type: 
  Country: None (occurrence: None)
  Receive Date: 20120710
  Receipt Date: 20120703
  Transmission Date: 20120928
  Serious: Yes (Hospitalization)
  Sender: FDA-Public Use
  Company Number: BR-BIOMARINP-002718

PATIENT
  Sex: Female
  Weight: 19 kg

DRUGS (2)
  1. NAGLAZYME [Suspect]
     Indication: MUCOPOLYSACCHARIDOSIS VI
     Route: 041
     Dates: start: 20070301
  2. ANTIBIOTICS [Concomitant]
     Indication: PYREXIA

REACTIONS (1)
  - BRONCHOSPASM [None]
